FAERS Safety Report 8874742 (Version 1)
Quarter: 2012Q4

REPORT INFORMATION
  Report Type: 
  Country: US (occurrence: US)
  Receive Date: 20121026
  Receipt Date: 20121026
  Transmission Date: 20130627
  Serious: No
  Sender: FDA-Public Use
  Company Number: US-AMGEN-USASP2012043104

PATIENT
  Sex: Female
  Weight: 43.99 kg

DRUGS (6)
  1. ENBREL [Suspect]
     Indication: PRODUCT USED FOR UNKNOWN INDICATION
     Dosage: 50 mg, qwk
     Route: 058
     Dates: start: 2005, end: 201204
  2. PROVERA [Concomitant]
     Dosage: 10 mg, UNK
  3. PREMARIN [Concomitant]
     Dosage: 0.45 mg, UNK
  4. ARAVA [Concomitant]
     Dosage: 10 mg, UNK
  5. CARVEDILOL [Concomitant]
     Dosage: 25 mg, UNK
  6. VITAMIN D3 [Concomitant]
     Dosage: 1000 UNK, UNK

REACTIONS (4)
  - Pain in extremity [Recovered/Resolved]
  - Neurological symptom [Recovered/Resolved]
  - Hypoaesthesia [Recovered/Resolved]
  - Hypersensitivity [Recovered/Resolved]
